FAERS Safety Report 8053354-1 (Version None)
Quarter: 2012Q1

REPORT INFORMATION
  Report Type: 
  Country: None (occurrence: None)
  Receive Date: 20120118
  Receipt Date: 20120112
  Transmission Date: 20120608
  Serious: Yes (Death)
  Sender: FDA-Public Use
  Company Number: US-SANOFI-AVENTIS-2012SA002235

PATIENT
  Age: 47 Year
  Sex: Female

DRUGS (2)
  1. PLAVIX [Suspect]
     Indication: STENT PLACEMENT
     Route: 048
     Dates: start: 20111201
  2. PLAVIX [Suspect]
     Indication: THROMBOSIS IN DEVICE
     Route: 048
     Dates: start: 20111201

REACTIONS (1)
  - HYPOTHERMIA [None]
